FAERS Safety Report 10227977 (Version 1)
Quarter: 2014Q2

REPORT INFORMATION
  Report Type: Spontaneous
  Country: CN (occurrence: None)
  Receive Date: 20140606
  Receipt Date: 20140606
  Transmission Date: 20141212
  Serious: Yes (Other)
  Sender: FDA-Public Use
  Company Number: 2014CN00508

PATIENT
  Sex: Male

DRUGS (2)
  1. IRINOTECAN [Suspect]
     Indication: HEPATOBLASTOMA RECURRENT
  2. VINCRISTINE (VINCRISTINE) [Suspect]
     Indication: HEPATOBLASTOMA RECURRENT
     Dosage: DAY 1 REPEATED EVERY 3 WKS

REACTIONS (1)
  - Disease recurrence [None]
